FAERS Safety Report 25129170 (Version 3)
Quarter: 2025Q3

REPORT INFORMATION
  Report Type: Report from Study
  Country: US (occurrence: US)
  Receive Date: 20250327
  Receipt Date: 20250803
  Transmission Date: 20251020
  Serious: Yes (Hospitalization, Other)
  Sender: ALEXION PHARMACEUTICALS
  Company Number: US-AstraZeneca-CH-00831943A

PATIENT
  Sex: Female

DRUGS (2)
  1. BUDESONIDE\FORMOTEROL\GLYCOPYRRONIUM [Suspect]
     Active Substance: BUDESONIDE\FORMOTEROL\GLYCOPYRRONIUM
     Route: 065
  2. ALBUTEROL\BUDESONIDE [Suspect]
     Active Substance: ALBUTEROL\BUDESONIDE
     Route: 065

REACTIONS (8)
  - Chest pain [Unknown]
  - Syncope [Unknown]
  - Dyspnoea [Unknown]
  - Fall [Unknown]
  - Nerve compression [Unknown]
  - Chronic obstructive pulmonary disease [Unknown]
  - Lung disorder [Unknown]
  - Tooth disorder [Unknown]
